FAERS Safety Report 9266873 (Version 1)
Quarter: 2013Q2

REPORT INFORMATION
  Report Type: Spontaneous
  Country: FR (occurrence: FR)
  Receive Date: 20130502
  Receipt Date: 20130502
  Transmission Date: 20140414
  Serious: Yes (Life-Threatening, Hospitalization)
  Sender: FDA-Public Use
  Company Number: FR-SANOFI-AVENTIS-2013SA000055

PATIENT
  Age: 60 Year
  Sex: Female
  Weight: 103 kg

DRUGS (2)
  1. DOCETAXEL [Suspect]
     Indication: BREAST CANCER
     Dosage: RECEIVED 3 COURSES OF THE THERAPY AT A DOSE 200 MG
     Route: 065
  2. DOCETAXEL [Suspect]
     Indication: BREAST CANCER
     Route: 065

REACTIONS (19)
  - Neutropenic colitis [Recovering/Resolving]
  - Pyrexia [Recovered/Resolved]
  - Abdominal pain [Recovering/Resolving]
  - Vomiting [Recovering/Resolving]
  - Diarrhoea [Recovering/Resolving]
  - Headache [Recovering/Resolving]
  - Tachycardia [Recovering/Resolving]
  - Dehydration [Recovering/Resolving]
  - Respiratory alkalosis [Unknown]
  - Blood pH increased [Unknown]
  - Carbon dioxide decreased [Unknown]
  - PO2 decreased [Unknown]
  - Sepsis [Recovering/Resolving]
  - C-reactive protein increased [Recovering/Resolving]
  - Blood pressure decreased [Recovered/Resolved]
  - Renal failure acute [Unknown]
  - Blood urea increased [Unknown]
  - Oliguria [Unknown]
  - Blood creatinine increased [Unknown]
